FAERS Safety Report 8615295-8 (Version None)
Quarter: 2012Q3

REPORT INFORMATION
  Report Type: 
  Country: None (occurrence: None)
  Receive Date: 20120823
  Receipt Date: 20120814
  Transmission Date: 20120928
  Serious: Yes (Other)
  Sender: FDA-Public Use
  Company Number: JP-SANOFI-AVENTIS-2012SA060148

PATIENT

DRUGS (1)
  1. LASIX [Suspect]
     Route: 048

REACTIONS (1)
  - FOREIGN BODY ASPIRATION [None]
